FAERS Safety Report 8194463 (Version 8)
Quarter: 2013Q1

REPORT INFORMATION
  Report Type: Spontaneous
  Country: US (occurrence: US)
  Receive Date: 20111024
  Receipt Date: 20130128
  Transmission Date: 20140127
  Serious: Yes (Hospitalization)
  Sender: FDA-Public Use
  Company Number: US-BIOGENIDEC-2011BI039936

PATIENT
  Age: 61 None
  Sex: Female

DRUGS (8)
  1. AVONEX [Suspect]
     Indication: MULTIPLE SCLEROSIS
     Route: 030
     Dates: start: 19980801, end: 2003
  2. AVONEX [Suspect]
     Indication: MULTIPLE SCLEROSIS
     Route: 030
     Dates: start: 2003
  3. AMPYRA [Concomitant]
     Indication: GAIT DISTURBANCE
     Dates: start: 20101013
  4. AMPYRA [Concomitant]
     Indication: BALANCE DISORDER
     Dates: start: 20101013
  5. AMPYRA [Concomitant]
     Indication: GAIT DISTURBANCE
     Dates: start: 201101, end: 201104
  6. AMPYRA [Concomitant]
     Indication: BALANCE DISORDER
     Dates: start: 201101, end: 201104
  7. AMPYRA [Concomitant]
     Indication: GAIT DISTURBANCE
     Dates: start: 2011
  8. AMPYRA [Concomitant]
     Indication: BALANCE DISORDER
     Dates: start: 2011

REACTIONS (9)
  - Herpes zoster [Unknown]
  - Invasive ductal breast carcinoma [Recovered/Resolved]
  - Nuclear magnetic resonance imaging breast abnormal [Not Recovered/Not Resolved]
  - Nodule [Not Recovered/Not Resolved]
  - Gait disturbance [Not Recovered/Not Resolved]
  - Balance disorder [Not Recovered/Not Resolved]
  - Mobility decreased [Not Recovered/Not Resolved]
  - Asthenia [Not Recovered/Not Resolved]
  - Fatigue [Not Recovered/Not Resolved]
